FAERS Safety Report 12649453 (Version 1)
Quarter: 2016Q3

REPORT INFORMATION
  Report Type: Spontaneous
  Country: US (occurrence: US)
  Receive Date: 20160812
  Receipt Date: 20160812
  Transmission Date: 20161109
  Serious: Yes (Hospitalization)
  Sender: FDA-Public Use
  Company Number: US-JNJFOC-20160510573

PATIENT
  Age: 77 Year

DRUGS (12)
  1. XARELTO [Suspect]
     Active Substance: RIVAROXABAN
     Indication: THROMBOSIS PROPHYLAXIS
     Dosage: 10MG,15MG AND 20MG
     Route: 048
     Dates: start: 20130624, end: 20131012
  2. XARELTO [Suspect]
     Active Substance: RIVAROXABAN
     Indication: ATRIAL FIBRILLATION
     Route: 048
     Dates: start: 20150418, end: 20150619
  3. XARELTO [Suspect]
     Active Substance: RIVAROXABAN
     Indication: THROMBOSIS PROPHYLAXIS
     Dosage: 10MG,15MG AND 20MG
     Route: 048
     Dates: start: 20141126, end: 20150318
  4. XARELTO [Suspect]
     Active Substance: RIVAROXABAN
     Indication: ATRIAL FIBRILLATION
     Dosage: 10MG,15MG AND 20MG
     Route: 048
     Dates: start: 20140610, end: 20140801
  5. XARELTO [Suspect]
     Active Substance: RIVAROXABAN
     Indication: THROMBOSIS PROPHYLAXIS
     Dosage: 10MG,15MG AND 20MG
     Route: 048
     Dates: start: 20140610, end: 20140801
  6. XARELTO [Suspect]
     Active Substance: RIVAROXABAN
     Indication: THROMBOSIS PROPHYLAXIS
     Route: 048
     Dates: start: 20150418, end: 20150619
  7. XARELTO [Suspect]
     Active Substance: RIVAROXABAN
     Indication: CEREBROVASCULAR ACCIDENT PROPHYLAXIS
     Dosage: 10MG,15MG AND 20MG
     Route: 048
     Dates: start: 20141126, end: 20150318
  8. XARELTO [Suspect]
     Active Substance: RIVAROXABAN
     Indication: CEREBROVASCULAR ACCIDENT PROPHYLAXIS
     Dosage: 10MG,15MG AND 20MG
     Route: 048
     Dates: start: 20140610, end: 20140801
  9. XARELTO [Suspect]
     Active Substance: RIVAROXABAN
     Indication: CEREBROVASCULAR ACCIDENT PROPHYLAXIS
     Route: 048
     Dates: start: 20150418, end: 20150619
  10. XARELTO [Suspect]
     Active Substance: RIVAROXABAN
     Indication: ATRIAL FIBRILLATION
     Dosage: 10MG,15MG AND 20MG
     Route: 048
     Dates: start: 20141126, end: 20150318
  11. XARELTO [Suspect]
     Active Substance: RIVAROXABAN
     Indication: CEREBROVASCULAR ACCIDENT PROPHYLAXIS
     Dosage: 10MG,15MG AND 20MG
     Route: 048
     Dates: start: 20130624, end: 20131012
  12. XARELTO [Suspect]
     Active Substance: RIVAROXABAN
     Indication: ATRIAL FIBRILLATION
     Dosage: 10MG,15MG AND 20MG
     Route: 048
     Dates: start: 20130624, end: 20131012

REACTIONS (4)
  - Haematoma [Unknown]
  - Contusion [Unknown]
  - Fall [Unknown]
  - Ecchymosis [Unknown]

NARRATIVE: CASE EVENT DATE: 20150510
